FAERS Safety Report 12184972 (Version 2)
Quarter: 2016Q1

REPORT INFORMATION
  Report Type: Spontaneous
  Country: BR (occurrence: BR)
  Receive Date: 20160316
  Receipt Date: 20160328
  Transmission Date: 20160526
  Serious: Yes (Hospitalization, Other)
  Sender: FDA-Public Use
  Company Number: BR-DSJP-DSU-2016-109512

PATIENT

DRUGS (6)
  1. PYRIDOXAMINE HYDROCHLORIDE\THIAMINE HYDROCHLORIDE\CYANOCOBALAMIN [Concomitant]
     Active Substance: CYANOCOBALAMIN\PYRIDOXAMINE HYDROCHLORIDE\THIAMINE HYDROCHLORIDE
     Indication: ANAEMIA
     Dosage: 5000 IU, UNK
     Dates: start: 201601
  2. VITAMIN D                          /00107901/ [Concomitant]
     Active Substance: ERGOCALCIFEROL
     Indication: PRODUCT USED FOR UNKNOWN INDICATION
     Dosage: UNK
  3. OLMETEC HCT [Suspect]
     Active Substance: HYDROCHLOROTHIAZIDE\OLMESARTAN MEDOXOMIL
     Indication: STENT PLACEMENT
  4. HEMAX                              /00909301/ [Concomitant]
     Indication: ANAEMIA
     Dosage: 4000 IU, ONCE EVERY 3 D
     Dates: start: 2011
  5. OLMETEC HCT [Suspect]
     Active Substance: HYDROCHLOROTHIAZIDE\OLMESARTAN MEDOXOMIL
     Indication: INFARCTION
     Dosage: 20/12.5MG, QD QAM
     Route: 048
     Dates: start: 2007
  6. ULORIC [Concomitant]
     Active Substance: FEBUXOSTAT
     Indication: PRODUCT USED FOR UNKNOWN INDICATION
     Dosage: UNK
     Dates: start: 2011

REACTIONS (9)
  - Pulmonary mycosis [Unknown]
  - Blood uric acid increased [Unknown]
  - Eating disorder [Unknown]
  - Depression [Unknown]
  - Renal failure [Not Recovered/Not Resolved]
  - Immune system disorder [Unknown]
  - Gastrointestinal carcinoma [Unknown]
  - Cough [Not Recovered/Not Resolved]
  - Pneumonia [Unknown]

NARRATIVE: CASE EVENT DATE: 2009
